FAERS Safety Report 5517550-7 (Version None)
Quarter: 2007Q4

REPORT INFORMATION
  Report Type: 
  Country: None (occurrence: None)
  Receive Date: 20071114
  Receipt Date: 20071102
  Transmission Date: 20080405
  Serious: Yes (Disabling, Other)
  Sender: FDA-Public Use
  Company Number: GB-ASTRAZENECA-2006GB00815

PATIENT
  Age: 65 Year
  Sex: Female

DRUGS (7)
  1. TAMOXIFEN CITRATE [Suspect]
     Indication: BREAST CANCER
     Route: 048
     Dates: start: 20030101, end: 20050301
  2. ARIMIDEX [Suspect]
     Indication: BREAST CANCER
     Route: 048
     Dates: start: 20050301, end: 20060101
  3. ARIMIDEX [Suspect]
     Route: 048
  4. METFORMIN HCL [Concomitant]
     Indication: TYPE 2 DIABETES MELLITUS
     Route: 048
     Dates: start: 20000101
  5. GLICLAZIDE [Concomitant]
     Indication: TYPE 2 DIABETES MELLITUS
     Route: 048
     Dates: start: 20000101
  6. LIPITOR [Concomitant]
     Indication: BLOOD CHOLESTEROL INCREASED
     Dates: start: 20000101
  7. GLYBURIDE [Concomitant]
     Route: 048

REACTIONS (12)
  - ARTHRALGIA [None]
  - BLINDNESS TRANSIENT [None]
  - CARPAL TUNNEL SYNDROME [None]
  - DRY SKIN [None]
  - EYE DISORDER [None]
  - HAIR DISORDER [None]
  - NAIL DISORDER [None]
  - NAUSEA [None]
  - ONYCHOCLASIS [None]
  - PAIN OF SKIN [None]
  - SKIN EXFOLIATION [None]
  - SKIN HAEMORRHAGE [None]
